FAERS Safety Report 7312935-0 (Version None)
Quarter: 2011Q1

REPORT INFORMATION
  Report Type: 
  Country: None (occurrence: None)
  Receive Date: 20110224
  Receipt Date: 20110216
  Transmission Date: 20110831
  Serious: Yes (Hospitalization, Disabling, Other)
  Sender: FDA-Public Use
  Company Number: US-WATSON-2011-02025

PATIENT
  Sex: Female

DRUGS (2)
  1. HEPARIN [Suspect]
     Indication: PERIPHERAL ARTERIAL OCCLUSIVE DISEASE
     Dosage: 1,000U/ML FROM 10 ML VIAL
     Route: 042
     Dates: start: 20071024, end: 20071031
  2. HEPARIN SODIUM [Suspect]
     Indication: PERIPHERAL ARTERIAL OCCLUSIVE DISEASE
     Dosage: SEVERAL DOSES
     Route: 042
     Dates: start: 20071024, end: 20071031

REACTIONS (8)
  - GRAFT THROMBOSIS [None]
  - HEPARIN-INDUCED THROMBOCYTOPENIA [None]
  - THROMBOSIS [None]
  - LEG AMPUTATION [None]
  - CYANOSIS [None]
  - PLATELET COUNT DECREASED [None]
  - EXTREMITY NECROSIS [None]
  - FRACTURE [None]
